FAERS Safety Report 22649787 (Version 2)
Quarter: 2023Q4

REPORT INFORMATION
  Report Type: Spontaneous
  Country: SG (occurrence: SG)
  Receive Date: 20230628
  Receipt Date: 20231103
  Transmission Date: 20240110
  Serious: Yes (Death, Other)
  Sender: FDA-Public Use
  Company Number: SG-GLAXOSMITHKLINE-SG2023APC079400

PATIENT

DRUGS (2)
  1. JEMPERLI [Suspect]
     Active Substance: DOSTARLIMAB-GXLY
     Indication: Endometrial cancer
     Dosage: UNK
  2. JEMPERLI [Suspect]
     Active Substance: DOSTARLIMAB-GXLY
     Dosage: UNK

REACTIONS (6)
  - Metastases to central nervous system [Fatal]
  - Tumour flare [Unknown]
  - Malignant neoplasm progression [Unknown]
  - Fatigue [Unknown]
  - Product use issue [Unknown]
  - Off label use [Unknown]
